FAERS Safety Report 25103087 (Version 1)
Quarter: 2025Q1

REPORT INFORMATION
  Report Type: Spontaneous
  Country: PT (occurrence: PT)
  Receive Date: 20250321
  Receipt Date: 20250321
  Transmission Date: 20250409
  Serious: Yes (Other)
  Sender: AUROBINDO
  Company Number: PT-PFIZER INC-2019011049

PATIENT
  Age: 43 Year
  Sex: Male

DRUGS (9)
  1. IRINOTECAN [Suspect]
     Active Substance: IRINOTECAN
     Indication: Rectal adenocarcinoma
     Route: 065
     Dates: start: 2015
  2. IRINOTECAN [Suspect]
     Active Substance: IRINOTECAN
     Route: 065
     Dates: end: 201503
  3. LEUCOVORIN CALCIUM [Suspect]
     Active Substance: LEUCOVORIN CALCIUM
     Indication: Rectal adenocarcinoma
     Route: 065
     Dates: start: 2015
  4. LEUCOVORIN CALCIUM [Suspect]
     Active Substance: LEUCOVORIN CALCIUM
     Route: 065
     Dates: end: 201503
  5. FLUOROURACIL [Suspect]
     Active Substance: FLUOROURACIL
     Indication: Rectal adenocarcinoma
     Route: 065
     Dates: start: 2015
  6. FLUOROURACIL [Suspect]
     Active Substance: FLUOROURACIL
     Route: 065
     Dates: end: 201503
  7. BEVACIZUMAB [Suspect]
     Active Substance: BEVACIZUMAB
     Indication: Rectal adenocarcinoma
     Route: 065
     Dates: start: 2015
  8. BEVACIZUMAB [Suspect]
     Active Substance: BEVACIZUMAB
     Route: 065
     Dates: end: 201503
  9. CETUXIMAB [Suspect]
     Active Substance: CETUXIMAB
     Indication: Rectal adenocarcinoma
     Route: 065

REACTIONS (3)
  - Disease progression [Unknown]
  - Therapy partial responder [Unknown]
  - Haematotoxicity [Unknown]
